FAERS Safety Report 15959360 (Version 1)
Quarter: 2019Q1

REPORT INFORMATION
  Report Type: Report from Study
  Country: AU (occurrence: AU)
  Receive Date: 20190214
  Receipt Date: 20190214
  Transmission Date: 20190417
  Serious: Yes (Other)
  Sender: FDA-Public Use
  Company Number: AU-REGENERON PHARMACEUTICALS, INC.-2019-16215

PATIENT

DRUGS (1)
  1. EYLEA [Suspect]
     Active Substance: AFLIBERCEPT
     Indication: NEOVASCULAR AGE-RELATED MACULAR DEGENERATION
     Dosage: UNK UNK, Q4WK, INJECTION TO BOTH EYES
     Route: 031
     Dates: start: 20180619

REACTIONS (2)
  - Loss of personal independence in daily activities [Unknown]
  - Retinal oedema [Unknown]

NARRATIVE: CASE EVENT DATE: 201901
